FAERS Safety Report 10260133 (Version 1)
Quarter: 2014Q2

REPORT INFORMATION
  Report Type: Spontaneous
  Country: US (occurrence: US)
  Receive Date: 20140625
  Receipt Date: 20140625
  Transmission Date: 20141212
  Serious: Yes (Other)
  Sender: FDA-Public Use
  Company Number: US-BAXTER-2014BAX033307

PATIENT
  Age: 26 Year
  Sex: Male

DRUGS (1)
  1. GAMMAGARD LIQUID [Suspect]
     Indication: MAN-IN-THE-BARREL SYNDROME
     Route: 042

REACTIONS (1)
  - Drug ineffective [Not Recovered/Not Resolved]
